FAERS Safety Report 23814063 (Version 1)
Quarter: 2024Q2

REPORT INFORMATION
  Report Type: Spontaneous
  Country: US (occurrence: None)
  Receive Date: 20240502
  Receipt Date: 20240502
  Transmission Date: 20240716
  Serious: Yes (Hospitalization)
  Sender: FDA-Public Use
  Company Number: None

PATIENT
  Age: 71 Year
  Sex: Male
  Weight: 88 kg

DRUGS (1)
  1. NAPROXEN [Suspect]
     Active Substance: NAPROXEN
     Indication: Pain
     Dosage: FREQUENCY : TWICE A DAY;?
     Route: 048
     Dates: start: 20240215, end: 20240218

REACTIONS (5)
  - Haemorrhage [None]
  - Joint noise [None]
  - Arthralgia [None]
  - Osteoarthritis [None]
  - Refusal of treatment by patient [None]

NARRATIVE: CASE EVENT DATE: 20240218
